FAERS Safety Report 13160829 (Version 1)
Quarter: 2017Q1

REPORT INFORMATION
  Report Type: Spontaneous
  Country: CN (occurrence: CN)
  Receive Date: 20170130
  Receipt Date: 20170130
  Transmission Date: 20170428
  Serious: Yes (Other)
  Sender: FDA-Public Use
  Company Number: CN-ROCHE-1885125

PATIENT
  Age: 57 Year
  Sex: Male
  Weight: 74 kg

DRUGS (2)
  1. ROCEPHIN [Suspect]
     Active Substance: CEFTRIAXONE SODIUM
     Indication: THERAPEUTIC PROCEDURE
     Route: 041
     Dates: start: 20160902, end: 20160919
  2. ORNIDAZOLE [Concomitant]
     Active Substance: ORNIDAZOLE
     Route: 041
     Dates: start: 20160902, end: 20160907

REACTIONS (1)
  - Enzyme level increased [Recovering/Resolving]

NARRATIVE: CASE EVENT DATE: 20160909
